FAERS Safety Report 4482101-5 (Version None)
Quarter: 2004Q4

REPORT INFORMATION
  Report Type: 
  Country: None (occurrence: None)
  Receive Date: 20041020
  Receipt Date: 20041007
  Transmission Date: 20050328
  Serious: Yes (Death)
  Sender: FDA-Public Use
  Company Number: 2004076413

PATIENT

DRUGS (2)
  1. VFEND [Suspect]
     Indication: ILL-DEFINED DISORDER
  2. CASPOFUNGIN ACETATE (CASPOFUNGIN ACETATE) [Concomitant]

REACTIONS (1)
  - BRADYCARDIA [None]
